FAERS Safety Report 18914445 (Version 2)
Quarter: 2021Q2

REPORT INFORMATION
  Report Type: Spontaneous
  Country: CN (occurrence: CN)
  Receive Date: 20210218
  Receipt Date: 20210416
  Transmission Date: 20210717
  Serious: Yes (Other)
  Sender: FDA-Public Use
  Company Number: CN-GILEAD-2021-0517675

PATIENT
  Age: 58 Year
  Sex: Male

DRUGS (3)
  1. HEPSERA [Suspect]
     Active Substance: ADEFOVIR DIPIVOXIL
     Indication: CHRONIC HEPATITIS B
     Dosage: 10 MG, QD
     Route: 065
     Dates: start: 2012
  2. BARACLUDE [Concomitant]
     Active Substance: ENTECAVIR
     Indication: CHRONIC HEPATITIS B
     Dosage: 0.5 MG, QD
     Dates: start: 2012
  3. METHYLENE DIPHOSPHONATE [Concomitant]
     Indication: BONE METABOLISM DISORDER
     Dosage: 740 MBQ
     Route: 042

REACTIONS (3)
  - Fanconi syndrome acquired [Recovered/Resolved]
  - Hypophosphataemic osteomalacia [Recovered/Resolved]
  - Bone pain [Recovered/Resolved]
